FAERS Safety Report 18322422 (Version 3)
Quarter: 2023Q1

REPORT INFORMATION
  Report Type: Spontaneous
  Country: US (occurrence: US)
  Receive Date: 20200929
  Receipt Date: 20230323
  Transmission Date: 20230418
  Serious: Yes (Other)
  Sender: FDA-Public Use
  Company Number: US-AUROBINDO-AUR-APL-2020-049621

PATIENT
  Age: 68 Year
  Sex: Female
  Weight: 72 kg

DRUGS (9)
  1. ARIPIPRAZOLE [Suspect]
     Active Substance: ARIPIPRAZOLE
     Indication: Sedative therapy
     Dosage: UNK
     Route: 065
  2. BUSPIRONE HYDROCHLORIDE [Suspect]
     Active Substance: BUSPIRONE HYDROCHLORIDE
     Indication: Sedative therapy
     Dosage: UNK
     Route: 065
  3. ETOMIDATE [Suspect]
     Active Substance: ETOMIDATE
     Indication: Sedative therapy
     Dosage: 0.15 MILLIGRAM/KILOGRAM
     Route: 065
  4. ETOMIDATE [Suspect]
     Active Substance: ETOMIDATE
     Dosage: 10 MILLIGRAM
     Route: 042
  5. FLUOXETINE [Suspect]
     Active Substance: FLUOXETINE HYDROCHLORIDE
     Indication: Sedative therapy
     Dosage: UNK
     Route: 065
  6. HYDROXYZINE [Suspect]
     Active Substance: HYDROXYZINE HYDROCHLORIDE
     Indication: Sedative therapy
     Dosage: UNK
     Route: 065
  7. KETOROLAC [Concomitant]
     Active Substance: KETOROLAC TROMETHAMINE
     Indication: Pain
     Dosage: 15 MILLIGRAM
     Route: 042
  8. MORPHINE [Concomitant]
     Active Substance: MORPHINE
     Indication: Pain
     Dosage: 4 MILLIGRAM
     Route: 042
  9. PROPOFOL [Concomitant]
     Active Substance: PROPOFOL
     Indication: Product used for unknown indication
     Dosage: 100 MILLIGRAM
     Route: 065

REACTIONS (2)
  - Generalised tonic-clonic seizure [Recovered/Resolved]
  - Off label use [Unknown]
